FAERS Safety Report 7045552-0 (Version None)
Quarter: 2010Q4

REPORT INFORMATION
  Report Type: 
  Country: None (occurrence: None)
  Receive Date: 20101014
  Receipt Date: 20101008
  Transmission Date: 20110411
  Serious: Yes (Hospitalization)
  Sender: FDA-Public Use
  Company Number: US-ABBOTT-10P-163-0670555-00

PATIENT
  Sex: Female
  Weight: 120.31 kg

DRUGS (7)
  1. HUMIRA [Suspect]
     Indication: HIDRADENITIS
     Dates: start: 20100701, end: 20100828
  2. HUMIRA [Suspect]
     Indication: RHEUMATOID ARTHRITIS
  3. GLIPIZIDE [Concomitant]
     Indication: DIABETES MELLITUS
  4. METOPROLOL [Concomitant]
     Indication: HYPERTENSION
  5. BENZAPRIL [Concomitant]
     Indication: HYPERTENSION
  6. GABAPENTIN [Concomitant]
     Indication: DIABETIC NEUROPATHY
  7. UNKNOWN ORAL DIABETES MEDS [Concomitant]
     Indication: DIABETES MELLITUS
     Route: 048

REACTIONS (7)
  - ANAEMIA [None]
  - HIDRADENITIS [None]
  - IMMUNE SYSTEM DISORDER [None]
  - PNEUMONIA [None]
  - SINUSITIS [None]
  - URINARY TRACT INFECTION [None]
  - WEIGHT DECREASED [None]
